FAERS Safety Report 6818370-3 (Version None)
Quarter: 2010Q3

REPORT INFORMATION
  Report Type: 
  Country: None (occurrence: None)
  Receive Date: 20100706
  Receipt Date: 20071218
  Transmission Date: 20110219
  Serious: Yes (Other)
  Sender: FDA-Public Use
  Company Number: US-PFIZER INC-2007103100

PATIENT
  Sex: Male
  Weight: 45.454 kg

DRUGS (4)
  1. ZITHROMAX [Suspect]
     Indication: PHARYNGITIS STREPTOCOCCAL
     Dates: start: 20071101, end: 20071101
  2. XANAX [Suspect]
     Indication: ANXIETY
     Dates: start: 20071201
  3. ATIVAN [Suspect]
     Indication: ANXIETY
  4. KLONOPIN [Suspect]
     Indication: ANXIETY

REACTIONS (3)
  - ANXIETY [None]
  - DRUG INEFFECTIVE [None]
  - NERVOUSNESS [None]
